FAERS Safety Report 9177272 (Version 1)
Quarter: 2013Q1

REPORT INFORMATION
  Report Type: Not Available
  Country: ES (occurrence: ES)
  Receive Date: 20130321
  Receipt Date: 20130321
  Transmission Date: 20140127
  Serious: Yes (Other)
  Sender: FDA-Public Use
  Company Number: ES-ASTELLAS-2013US002945

PATIENT
  Age: 36 Year
  Sex: Female

DRUGS (4)
  1. AMBISOME [Suspect]
     Indication: MYCETOMA MYCOTIC
     Dosage: 150 MG, UID/QD
     Route: 042
     Dates: start: 20121019, end: 20121026
  2. OMEPRAZOL                          /00661201/ [Suspect]
     Indication: PROPHYLAXIS AGAINST GASTROINTESTINAL ULCER
     Dosage: 20 MG, UID/QD
     Route: 048
     Dates: start: 20121018, end: 20121026
  3. METAMIZOL                          /06276702/ [Concomitant]
     Indication: PRODUCT USED FOR UNKNOWN INDICATION
     Dosage: UNK
     Route: 065
  4. DEXKETOPROFEN [Concomitant]
     Indication: PRODUCT USED FOR UNKNOWN INDICATION
     Dosage: UNK
     Route: 065
     Dates: start: 20121021, end: 20121022

REACTIONS (1)
  - Hepatitis cholestatic [Recovered/Resolved]
